FAERS Safety Report 19568664 (Version 1)
Quarter: 2021Q3

REPORT INFORMATION
  Report Type: Spontaneous
  Country: US (occurrence: US)
  Receive Date: 20210714
  Receipt Date: 20210714
  Transmission Date: 20211014
  Serious: No
  Sender: FDA-Public Use
  Company Number: US-AMGEN-USASP2021106542

PATIENT
  Sex: Female

DRUGS (3)
  1. PROLIA [Suspect]
     Active Substance: DENOSUMAB
     Indication: OSTEOPOROSIS
     Dosage: UNK
     Route: 065
  2. COVID?19 VACCINE [Concomitant]
     Indication: COVID-19
     Dosage: UNK
     Dates: start: 202103
  3. DERMAZINC [Concomitant]
     Indication: RASH

REACTIONS (2)
  - Paranasal sinus discomfort [Unknown]
  - Headache [Unknown]
